FAERS Safety Report 5491099-2 (Version None)
Quarter: 2007Q4

REPORT INFORMATION
  Report Type: 
  Country: None (occurrence: None)
  Receive Date: 20071019
  Receipt Date: 20071009
  Transmission Date: 20080405
  Serious: Yes (Other)
  Sender: FDA-Public Use
  Company Number: DE-PFIZER INC-2007066146

PATIENT
  Sex: Female
  Weight: 55 kg

DRUGS (5)
  1. LYRICA [Suspect]
     Indication: GENERALISED ANXIETY DISORDER
     Dosage: DAILY DOSE:50MG
     Route: 048
  2. LYRICA [Suspect]
     Indication: NEURALGIA
  3. TAVOR [Concomitant]
  4. NEXIUM [Concomitant]
  5. EUTHYROX [Concomitant]

REACTIONS (3)
  - COLOUR BLINDNESS [None]
  - TUNNEL VISION [None]
  - VISION BLURRED [None]
